FAERS Safety Report 10983181 (Version 1)
Quarter: 2015Q2

REPORT INFORMATION
  Report Type: Spontaneous
  Country: JP (occurrence: JP)
  Receive Date: 20150403
  Receipt Date: 20150403
  Transmission Date: 20150821
  Serious: Yes (Hospitalization)
  Sender: FDA-Public Use
  Company Number: JP-EMD SERONO-8018508

PATIENT
  Age: 30 Year
  Sex: Female

DRUGS (1)
  1. SEROPHENE [Suspect]
     Active Substance: CLOMIPHENE CITRATE
     Indication: OVULATION DISORDER
     Dosage: 4 DAYS
     Route: 048

REACTIONS (3)
  - Ovarian hyperstimulation syndrome [Recovering/Resolving]
  - Abortion missed [Recovering/Resolving]
  - Ectopic pregnancy [Recovering/Resolving]
